FAERS Safety Report 11907220 (Version 2)
Quarter: 2017Q1

REPORT INFORMATION
  Report Type: Spontaneous
  Country: BR (occurrence: BR)
  Receive Date: 20160111
  Receipt Date: 20170130
  Transmission Date: 20170428
  Serious: Yes (Other)
  Sender: FDA-Public Use
  Company Number: BR-JNJFOC-20160103533

PATIENT
  Sex: Female
  Weight: 70 kg

DRUGS (1)
  1. ORTHO EVRA [Suspect]
     Active Substance: ETHINYL ESTRADIOL\NORELGESTROMIN
     Indication: CONTRACEPTION
     Dosage: PERFORM ONE WEEK OF BREAK AND USES FOR 5 YEARS
     Route: 062
     Dates: start: 2010

REACTIONS (5)
  - Blood triglycerides abnormal [Unknown]
  - Blood catecholamines abnormal [Not Recovered/Not Resolved]
  - Blood cholesterol abnormal [Unknown]
  - Micturition disorder [Not Recovered/Not Resolved]
  - Rosacea [Not Recovered/Not Resolved]

NARRATIVE: CASE EVENT DATE: 2015
